FAERS Safety Report 6428033-4 (Version None)
Quarter: 2009Q4

REPORT INFORMATION
  Report Type: 
  Country: None (occurrence: None)
  Receive Date: 20091105
  Receipt Date: 20091029
  Transmission Date: 20100525
  Serious: Yes (Hospitalization)
  Sender: FDA-Public Use
  Company Number: FR-ASTRAZENECA-2009SE23915

PATIENT
  Age: 15 Year
  Sex: Male

DRUGS (24)
  1. MOPRAL [Suspect]
     Route: 048
     Dates: start: 20090824
  2. METHOTREXATE [Interacting]
     Indication: LYMPHOMA
     Dosage: 5.34 G/ COURSE
     Route: 042
     Dates: start: 20090824
  3. SODIUM BICARBONATE IN PLASTIC CONTAINER [Concomitant]
  4. PRIMPERAN [Concomitant]
  5. LASILIX [Concomitant]
  6. LACTULOSE [Concomitant]
  7. BISEPTINE [Concomitant]
  8. AUREOMYCINE [Concomitant]
  9. GLUCOSE [Concomitant]
  10. SODIUM CHLORIDE [Concomitant]
  11. CERNEVIT-12 [Concomitant]
  12. VITAMIN K1 [Concomitant]
  13. FORTUM [Concomitant]
  14. VANCOMYCIN [Concomitant]
  15. PERFALGAN [Concomitant]
     Dosage: AS REQUIRED
  16. FOLINIC ACID [Concomitant]
  17. UROMITEXAN [Concomitant]
  18. ZOPHREN [Concomitant]
  19. PLITICAN [Concomitant]
  20. SPASFON [Concomitant]
  21. DEXAMETHASONE [Concomitant]
     Dosage: 18 MG/ COURSE
     Route: 048
     Dates: start: 20090824
  22. MYCOSTATIN [Concomitant]
  23. DOXORUBICIN HCL [Concomitant]
     Dosage: 45 MG/ COURSE
     Route: 042
     Dates: start: 20090806
  24. ENDOXAN [Concomitant]
     Route: 042
     Dates: start: 20090824

REACTIONS (2)
  - DRUG HALF-LIFE INCREASED [None]
  - DRUG INTERACTION [None]
